FAERS Safety Report 4466616-1 (Version None)
Quarter: 2004Q3

REPORT INFORMATION
  Report Type: 
  Country: None (occurrence: None)
  Receive Date: 20040928
  Receipt Date: 20040928
  Transmission Date: 20050211
  Serious: Yes (Hospitalization)
  Sender: FDA-Public Use
  Company Number: None

PATIENT
  Age: 55 Year
  Sex: Female
  Weight: 71.6683 kg

DRUGS (9)
  1. DOXORUBICIN 24 MG/M2 [Suspect]
     Indication: BREAST CANCER
     Dosage: 42MG IV BOLUS
     Route: 042
     Dates: start: 20040830
  2. CYTOXAN [Suspect]
     Indication: BREAST CANCER
     Dosage: 100 MG QD PO
     Route: 048
     Dates: start: 20040830, end: 20040906
  3. ZOLOFT [Concomitant]
  4. COUMADIN [Concomitant]
  5. M.V.I. [Concomitant]
  6. CALCIUM [Concomitant]
  7. ZOFRAN [Concomitant]
  8. PREVACID [Concomitant]
  9. LEVAQUIN [Concomitant]

REACTIONS (3)
  - FEBRILE NEUTROPENIA [None]
  - NASAL CONGESTION [None]
  - PRODUCTIVE COUGH [None]
